FAERS Safety Report 12073229 (Version 1)
Quarter: 2016Q1

REPORT INFORMATION
  Report Type: Spontaneous
  Country: US (occurrence: None)
  Receive Date: 20160211
  Receipt Date: 20160211
  Transmission Date: 20160526
  Serious: Yes (Hospitalization)
  Sender: FDA-Public Use
  Company Number: None

PATIENT
  Age: 9 Year
  Sex: Male
  Weight: 22.68 kg

DRUGS (3)
  1. LEVETIRACETAM NORTHSTAR 100 MG/ML NORTHSTAR PHARMACEUTICALS [Suspect]
     Active Substance: LEVETIRACETAM
     Indication: SEIZURE
     Dosage: 4.5 ML TWICE DAILY, TAKEN BY MOUTH
     Dates: start: 20160207, end: 20160207
  2. TRILEPTAL [Concomitant]
     Active Substance: OXCARBAZEPINE
  3. LEVETIRACETAM. [Concomitant]
     Active Substance: LEVETIRACETAM

REACTIONS (4)
  - No reaction on previous exposure to drug [None]
  - Anaphylactic shock [None]
  - Seizure [None]
  - Therapy change [None]

NARRATIVE: CASE EVENT DATE: 20160207
